FAERS Safety Report 24325256 (Version 1)
Quarter: 2024Q3

REPORT INFORMATION
  Report Type: Report from Study
  Country: NL (occurrence: NL)
  Receive Date: 20240916
  Receipt Date: 20240916
  Transmission Date: 20241017
  Serious: Yes (Death, Hospitalization)
  Sender: ABBVIE
  Company Number: NL-ABBVIE-5907921

PATIENT
  Sex: Female

DRUGS (16)
  1. CARBIDOPA\LEVODOPA [Suspect]
     Active Substance: CARBIDOPA\LEVODOPA
     Indication: Parkinson^s disease
     Dosage: MD 9.1ML, CD 7.0ML/H, ED 4.5ML, CND 4.9ML/H, END 4.50ML?REMAINS AT 16 HOURS, GOES TO 24 HOURS
     Route: 050
     Dates: start: 20240703, end: 20240723
  2. CARBIDOPA\LEVODOPA [Suspect]
     Active Substance: CARBIDOPA\LEVODOPA
     Dosage: MD 12.0ML, CD 6.5ML/H, ED 4.0ML?REMAINS AT 16 HOURS
     Route: 050
     Dates: start: 20240517, end: 20240524
  3. CARBIDOPA\LEVODOPA [Suspect]
     Active Substance: CARBIDOPA\LEVODOPA
     Dosage: CD 6.8ML/H?REMAINS AT 24 HOURS, LAST ADMIN DATE: 2024
     Route: 050
     Dates: start: 20240816
  4. CARBIDOPA\LEVODOPA [Suspect]
     Active Substance: CARBIDOPA\LEVODOPA
     Dosage: MD 14.0ML, CD 7.0ML/H, ED 4.5ML,?REMAINS AT 16 HOURS
     Route: 050
     Dates: start: 20240620, end: 20240702
  5. CARBIDOPA\LEVODOPA [Suspect]
     Active Substance: CARBIDOPA\LEVODOPA
     Dosage: LAST ADMIN DATE: 2024
     Route: 050
     Dates: start: 20240415
  6. CARBIDOPA\LEVODOPA [Suspect]
     Active Substance: CARBIDOPA\LEVODOPA
     Dosage: MD 14.0ML, CD 6.8ML/H, ED 4.0ML?REMAINS AT 16 HOURS
     Route: 050
     Dates: start: 20240525, end: 20240619
  7. CARBIDOPA\LEVODOPA [Suspect]
     Active Substance: CARBIDOPA\LEVODOPA
     Dosage: CND 6.0ML/H, END 4.50ML?REMAINS AT 24 HOURS
     Route: 050
     Dates: start: 20240724, end: 20240815
  8. CARBIDOPA\LEVODOPA [Suspect]
     Active Substance: CARBIDOPA\LEVODOPA
     Dosage: MD 12.0ML, CD 6.5ML/H, ED 2.0ML, REMAINS AT 16 HOURS
     Route: 050
     Dates: start: 20240513, end: 20240516
  9. NEUPRO [Concomitant]
     Active Substance: ROTIGOTINE
     Indication: Parkinson^s disease
     Dosage: APPLY 1 PATCH, REMOVE IT IN MORNING
  10. SIMVASTATIN [Concomitant]
     Active Substance: SIMVASTATIN
     Indication: Blood cholesterol abnormal
  11. APIXABAN [Concomitant]
     Active Substance: APIXABAN
     Indication: Anticoagulant therapy
  12. METOPROLOL [Concomitant]
     Active Substance: METOPROLOL
     Indication: Arrhythmia
     Route: 065
  13. PANTOPRAZOLE [Concomitant]
     Active Substance: PANTOPRAZOLE
     Indication: Gastrointestinal disorder prophylaxis
  14. DOMPERIDONE [Concomitant]
     Active Substance: DOMPERIDONE
     Indication: Nausea
  15. POLYETHYLENE GLYCOLS [Concomitant]
     Active Substance: POLYETHYLENE GLYCOLS
     Indication: Constipation
  16. CARBIDOPA AND LEVODOPA [Concomitant]
     Active Substance: CARBIDOPA\LEVODOPA
     Indication: Parkinson^s disease
     Route: 065

REACTIONS (2)
  - Death [Fatal]
  - Hospitalisation [Not Recovered/Not Resolved]

NARRATIVE: CASE EVENT DATE: 20240101
